FAERS Safety Report 9838557 (Version 2)
Quarter: 2014Q4

REPORT INFORMATION
  Report Type: Spontaneous
  Country: US (occurrence: None)
  Receive Date: 20131206
  Receipt Date: 20141209
  Transmission Date: 20150529
  Serious: Yes (Hospitalization, Other)
  Sender: FDA-Public Use
  Company Number: 387826

PATIENT
  Age: 9 Year
  Sex: Female
  Weight: 46.3 kg

DRUGS (2)
  1. LANTUS [Concomitant]
     Active Substance: INSULIN GLARGINE
  2. NOVOLOG [Suspect]
     Active Substance: INSULIN ASPART
     Indication: TYPE 1 DIABETES MELLITUS
     Dosage: CARBOHYDRATE CORRECTION DOSE, QID, SUBCUTANEOUS
     Route: 058
     Dates: start: 20130212

REACTIONS (6)
  - Weight decreased [None]
  - Diabetic ketoacidosis [None]
  - Enterobiasis [None]
  - Product distribution issue [None]
  - Blood glucose increased [None]
  - Drug ineffective [None]

NARRATIVE: CASE EVENT DATE: 20130914
